FAERS Safety Report 8247595-8 (Version None)
Quarter: 2012Q1

REPORT INFORMATION
  Report Type: 
  Country: None (occurrence: None)
  Receive Date: 20120330
  Receipt Date: 20120322
  Transmission Date: 20120608
  Serious: Yes (Other)
  Sender: FDA-Public Use
  Company Number: PHHY2012BR023399

PATIENT
  Age: 59 Year
  Sex: Female

DRUGS (7)
  1. ASPIRIN [Concomitant]
  2. DIGEPLUS [Concomitant]
  3. PROCIMAX [Concomitant]
  4. SIMVASTATIN [Suspect]
     Route: 048
  5. FLOXOCIP [Concomitant]
  6. PANTOPRAZOLE [Suspect]
     Route: 048
  7. EXFORGE [Concomitant]
     Indication: HYPERTENSION
     Dosage: 1 DF, QD; MORNING
     Route: 048

REACTIONS (4)
  - ABDOMINAL DISCOMFORT [None]
  - ANXIETY [None]
  - HEART RATE INCREASED [None]
  - BLOOD PRESSURE INCREASED [None]
